FAERS Safety Report 8006796-4 (Version None)
Quarter: 2011Q4

REPORT INFORMATION
  Report Type: 
  Country: None (occurrence: None)
  Receive Date: 20111123
  Receipt Date: 20110915
  Transmission Date: 20120403
  Serious: No
  Sender: FDA-Public Use
  Company Number: 332631

PATIENT
  Age: 65 Year
  Sex: Male

DRUGS (1)
  1. VICTOZA [Suspect]
     Indication: TYPE 2 DIABETES MELLITUS

REACTIONS (5)
  - PERTUSSIS [None]
  - NAUSEA [None]
  - INJECTION SITE PRURITUS [None]
  - ABDOMINAL DISCOMFORT [None]
  - INJECTION SITE DISCOLOURATION [None]
